FAERS Safety Report 9458701 (Version 2)
Quarter: 2014Q3

REPORT INFORMATION
  Report Type: Spontaneous
  Country: US (occurrence: None)
  Receive Date: 20130812
  Receipt Date: 20140702
  Transmission Date: 20150326
  Serious: Yes (Hospitalization)
  Sender: FDA-Public Use
  Company Number: SYM-2013-07622

PATIENT
  Age: 22 Year
  Sex: Female

DRUGS (1)
  1. SOLODYN [Suspect]
     Active Substance: MINOCYCLINE HYDROCHLORIDE
     Indication: ACNE
     Route: 048
     Dates: start: 2013

REACTIONS (3)
  - Vision blurred [None]
  - Headache [None]
  - Benign intracranial hypertension [None]

NARRATIVE: CASE EVENT DATE: 2013
